FAERS Safety Report 24938268 (Version 1)
Quarter: 2025Q1

REPORT INFORMATION
  Report Type: Spontaneous
  Country: US (occurrence: None)
  Receive Date: 20250206
  Receipt Date: 20250206
  Transmission Date: 20250409
  Serious: No
  Sender: FDA-CTU
  Company Number: None

PATIENT
  Age: 63 Year
  Sex: Female
  Weight: 50.35 kg

DRUGS (1)
  1. LEVOTHYROXINE [Suspect]
     Active Substance: LEVOTHYROXINE
     Indication: Hypothyroidism
     Dosage: OTHER QUANTITY : 0.088MG;?FREQUENCY : DAILY;?
     Route: 048
     Dates: start: 2005

REACTIONS (6)
  - Fatigue [None]
  - Headache [None]
  - Pain [None]
  - Nausea [None]
  - Decreased appetite [None]
  - Gastrointestinal disorder [None]

NARRATIVE: CASE EVENT DATE: 20050527
